FAERS Safety Report 10170872 (Version 1)
Quarter: 2014Q2

REPORT INFORMATION
  Report Type: Spontaneous
  Country: BE (occurrence: None)
  Receive Date: 20140512
  Receipt Date: 20140512
  Transmission Date: 20141212
  Serious: Yes (Death, Hospitalization)
  Sender: FDA-Public Use
  Company Number: 2014P1003888

PATIENT
  Age: 75 Year
  Sex: Female

DRUGS (12)
  1. LITHIUM [Suspect]
     Indication: BIPOLAR DISORDER
  2. NIMESULIDE [Suspect]
     Indication: PAIN
  3. VENLAFAXINE [Concomitant]
  4. TRAZODONE [Concomitant]
  5. DULOXETINE [Concomitant]
  6. BISOPROLOL [Concomitant]
  7. SIMVASTATIN [Concomitant]
  8. METFORMIN [Concomitant]
  9. PIRACETAM [Concomitant]
  10. ALPRAZOLAM [Concomitant]
  11. ZOPICLONE [Concomitant]
  12. LORAZEPAM [Concomitant]

REACTIONS (16)
  - Aphasia [None]
  - Ataxia [None]
  - Disorientation [None]
  - Aphasia [None]
  - Confusional state [None]
  - Restlessness [None]
  - Tremor [None]
  - Gait disturbance [None]
  - Toxicity to various agents [None]
  - Blood creatinine increased [None]
  - Blood urea increased [None]
  - Blood thyroid stimulating hormone increased [None]
  - Cerebral hygroma [None]
  - Acute coronary syndrome [None]
  - Cardiogenic shock [None]
  - Drug interaction [None]
